FAERS Safety Report 4345234-X (Version None)
Quarter: 2004Q2

REPORT INFORMATION
  Report Type: 
  Country: None (occurrence: None)
  Receive Date: 20040423
  Receipt Date: 20040412
  Transmission Date: 20050107
  Serious: Yes (Other)
  Sender: FDA-Public Use
  Company Number: ES-ROCHE-364339

PATIENT
  Age: 42 Year
  Sex: Female
  Weight: 60 kg

DRUGS (2)
  1. PEGASYS [Suspect]
     Indication: CHRONIC HEPATITIS
     Route: 058
     Dates: start: 20040319, end: 20040409
  2. REBETOL [Concomitant]
     Route: 048
     Dates: start: 20040319, end: 20040409

REACTIONS (11)
  - AFFECT LABILITY [None]
  - CONFUSIONAL STATE [None]
  - DELIRIUM [None]
  - EAR CONGESTION [None]
  - EPISTAXIS [None]
  - GINGIVAL BLEEDING [None]
  - INCONTINENCE [None]
  - INJECTION SITE PRURITUS [None]
  - NASAL CONGESTION [None]
  - NASOPHARYNGEAL DISORDER [None]
  - ROAD TRAFFIC ACCIDENT [None]
